FAERS Safety Report 9580298 (Version 1)
Quarter: 2013Q4

REPORT INFORMATION
  Report Type: Spontaneous
  Country: US (occurrence: None)
  Receive Date: 20131001
  Receipt Date: 20131001
  Transmission Date: 20140711
  Serious: Yes (Life-Threatening, Hospitalization)
  Sender: FDA-Public Use
  Company Number: None

PATIENT
  Sex: Male
  Weight: 60.7 kg

DRUGS (1)
  1. MOXIFLOXACIN [Suspect]
     Indication: INFECTION
     Route: 048
     Dates: start: 20121010, end: 20121017

REACTIONS (7)
  - Swelling face [None]
  - Haematochezia [None]
  - Proteinuria [None]
  - Haemoglobin decreased [None]
  - Haemorrhoids [None]
  - Local swelling [None]
  - Local swelling [None]
